FAERS Safety Report 25605510 (Version 3)
Quarter: 2025Q3

REPORT INFORMATION
  Report Type: Report from Study
  Country: US (occurrence: US)
  Receive Date: 20250725
  Receipt Date: 20250901
  Transmission Date: 20251021
  Serious: Yes (Life-Threatening, Hospitalization)
  Sender: SANOFI AVENTIS
  Company Number: US-SA-2025SA214004

PATIENT
  Age: 58 Year
  Sex: Male
  Weight: 68 kg

DRUGS (11)
  1. OXALIPLATIN [Suspect]
     Active Substance: OXALIPLATIN
     Indication: Diffuse large B-cell lymphoma
     Route: 042
     Dates: start: 20250523
  2. OXALIPLATIN [Suspect]
     Active Substance: OXALIPLATIN
     Dosage: 179 MG, QOW
     Route: 042
     Dates: start: 20250523
  3. EPCORITAMAB [Suspect]
     Active Substance: EPCORITAMAB
     Indication: Diffuse large B-cell lymphoma
  4. GEMCITABINE [Suspect]
     Active Substance: GEMCITABINE
     Indication: Diffuse large B-cell lymphoma
     Route: 042
     Dates: start: 20250523
  5. GEMCITABINE [Suspect]
     Active Substance: GEMCITABINE
     Dosage: 1790 MG, QOW
     Route: 042
     Dates: start: 20250523
  6. RITUXIMAB [Suspect]
     Active Substance: RITUXIMAB
     Indication: Diffuse large B-cell lymphoma
     Route: 042
     Dates: start: 20250523
  7. RITUXIMAB [Suspect]
     Active Substance: RITUXIMAB
     Dosage: 671 MG, QOW (671 MG, QOW, D1 + D15)
     Route: 042
     Dates: start: 20250523
  8. GABAPENTIN [Concomitant]
     Active Substance: GABAPENTIN
     Indication: Cancer pain
     Dosage: 300 MG, TID
     Dates: start: 2024
  9. ACETAMINOPHEN\HYDROCODONE [Concomitant]
     Active Substance: ACETAMINOPHEN\HYDROCODONE
     Indication: Cancer pain
     Dates: start: 2024
  10. MORPHINE SULFATE [Concomitant]
     Active Substance: MORPHINE SULFATE
     Indication: Cancer pain
     Dosage: 15 MG, BID
     Dates: start: 20250519
  11. ALLOPURINOL [Concomitant]
     Active Substance: ALLOPURINOL
     Indication: Prophylaxis
     Dosage: 300 MG, BID
     Dates: start: 20250521

REACTIONS (1)
  - Tumour lysis syndrome [Recovered/Resolved]

NARRATIVE: CASE EVENT DATE: 20250524
